FAERS Safety Report 8472436-3 (Version None)
Quarter: 2012Q2

REPORT INFORMATION
  Report Type: 
  Country: None (occurrence: None)
  Receive Date: 20120627
  Receipt Date: 20110908
  Transmission Date: 20120825
  Serious: No
  Sender: FDA-Public Use
  Company Number: US-AMGEN-USASP2011046626

PATIENT
  Age: 64 Year
  Sex: Male
  Weight: 83.9 kg

DRUGS (3)
  1. GENGRAF [Concomitant]
     Indication: DRUG HYPERSENSITIVITY
     Dosage: UNK
     Dates: start: 20030101
  2. PROCRIT [Suspect]
     Indication: ANAEMIA
     Dosage: 20000 IU, PRN
     Route: 058
     Dates: start: 20070101
  3. PROCRIT [Suspect]
     Dosage: 40000 IU, PRN
     Route: 058

REACTIONS (4)
  - DRUG INEFFECTIVE [None]
  - HAEMOGLOBIN DECREASED [None]
  - ASTHENIA [None]
  - MALAISE [None]
